FAERS Safety Report 5924255-7 (Version None)
Quarter: 2008Q4

REPORT INFORMATION
  Report Type: 
  Country: None (occurrence: None)
  Receive Date: 20081020
  Receipt Date: 20081009
  Transmission Date: 20090506
  Serious: Yes (Hospitalization)
  Sender: FDA-Public Use
  Company Number: JP-ASTRAZENECA-2008SE04829

PATIENT
  Age: 68 Year
  Sex: Female

DRUGS (6)
  1. PARAPRES 16 MG COMPRIMIDOS, 28 COMPRIMIDOS [Suspect]
     Indication: HYPERTENSION
     Route: 048
  2. SEGURIL 40 MG COMPRIMIDOS, 10 COMPRIMIDOS [Interacting]
     Indication: HYPERTENSION
     Route: 048
  3. ALDACTONE [Interacting]
     Indication: HYPERTENSION
     Route: 048
  4. OXCARBAZEPINE [Interacting]
     Route: 048
     Dates: start: 20080901, end: 20080920
  5. SINTROM UNO GEIGY 1MG 60 COMPRIMIDOS [Concomitant]
     Route: 048
  6. BOI-K , 20 COMPRIMIDOS [Concomitant]
     Route: 048

REACTIONS (2)
  - DRUG INTERACTION [None]
  - HYPONATRAEMIA [None]
